FAERS Safety Report 6665851-1 (Version None)
Quarter: 2010Q2

REPORT INFORMATION
  Report Type: 
  Country: None (occurrence: None)
  Receive Date: 20100402
  Receipt Date: 20100325
  Transmission Date: 20101027
  Serious: Yes (Other)
  Sender: FDA-Public Use
  Company Number: US-PFIZER INC-2010039524

PATIENT
  Sex: Male
  Weight: 79.378 kg

DRUGS (3)
  1. CELEBREX [Suspect]
     Indication: ARTHRALGIA
     Dosage: UNK
     Dates: end: 20100101
  2. CELEBREX [Suspect]
     Indication: PAIN
  3. METOPROLOL [Concomitant]
     Indication: HEART RATE IRREGULAR
     Dosage: 25 MG, UNK

REACTIONS (7)
  - BACK PAIN [None]
  - CONTUSION [None]
  - FACE INJURY [None]
  - FALL [None]
  - HIP SURGERY [None]
  - PRURITUS [None]
  - RASH MACULAR [None]
